FAERS Safety Report 8096370-6 (Version None)
Quarter: 2012Q1

REPORT INFORMATION
  Report Type: 
  Country: None (occurrence: None)
  Receive Date: 20120129
  Receipt Date: 20111108
  Transmission Date: 20120608
  Serious: No
  Sender: FDA-Public Use
  Company Number: US-ABBOTT-11P-163-0872587-00

PATIENT
  Sex: Female
  Weight: 63.56 kg

DRUGS (4)
  1. HUMIRA [Suspect]
     Indication: JUVENILE ARTHRITIS
     Dates: start: 20090701
  2. METHOTREXATE [Concomitant]
     Indication: JUVENILE ARTHRITIS
  3. MOBIC [Concomitant]
     Indication: JUVENILE ARTHRITIS
  4. FOLIC ACID [Concomitant]
     Indication: JUVENILE ARTHRITIS

REACTIONS (2)
  - INJECTION SITE PAIN [None]
  - DRUG ADMINISTERED AT INAPPROPRIATE SITE [None]
